FAERS Safety Report 11185398 (Version 1)
Quarter: 2015Q2

REPORT INFORMATION
  Report Type: Spontaneous
  Country: CA (occurrence: CA)
  Receive Date: 20150612
  Receipt Date: 20150612
  Transmission Date: 20150821
  Serious: Yes (Other)
  Sender: FDA-Public Use
  Company Number: CA-APOTEX-2015AP008958

PATIENT
  Sex: Female

DRUGS (5)
  1. SULFATRIM [Suspect]
     Active Substance: SULFAMETHOXAZOLE\TRIMETHOPRIM
     Indication: FUNGAL INFECTION
     Dosage: 1 DF, BID
     Route: 065
     Dates: start: 201409
  2. SULFATRIM [Suspect]
     Active Substance: SULFAMETHOXAZOLE\TRIMETHOPRIM
     Indication: BACTERIAL INFECTION
  3. APO-AMOXI CLAV [Suspect]
     Active Substance: AMOXICILLIN\CLAVULANIC ACID
     Indication: FUNGAL INFECTION
     Dosage: 1 DF, TID
     Route: 065
  4. APO-AMOXI CLAV [Suspect]
     Active Substance: AMOXICILLIN\CLAVULANIC ACID
     Indication: BACTERIAL INFECTION
  5. FUSIDIC ACID [Suspect]
     Active Substance: FUSIDIC ACID
     Indication: VAGINAL INFECTION
     Dosage: 2 UNK, UNK

REACTIONS (16)
  - Pain [Not Recovered/Not Resolved]
  - Treatment noncompliance [Not Recovered/Not Resolved]
  - Suicidal ideation [Not Recovered/Not Resolved]
  - Weight decreased [Not Recovered/Not Resolved]
  - Insomnia [Not Recovered/Not Resolved]
  - Flatulence [Recovered/Resolved]
  - Fatigue [Not Recovered/Not Resolved]
  - Stress [Not Recovered/Not Resolved]
  - Drug ineffective [Not Recovered/Not Resolved]
  - Malaise [Not Recovered/Not Resolved]
  - Walking disability [Recovered/Resolved]
  - Genital swelling [Not Recovered/Not Resolved]
  - Nausea [Not Recovered/Not Resolved]
  - Anxiety [Not Recovered/Not Resolved]
  - Abdominal discomfort [Not Recovered/Not Resolved]
  - Activities of daily living impaired [Not Recovered/Not Resolved]
